FAERS Safety Report 14150060 (Version 1)
Quarter: 2017Q4

REPORT INFORMATION
  Report Type: Spontaneous
  Country: ES (occurrence: ES)
  Receive Date: 20171101
  Receipt Date: 20171101
  Transmission Date: 20180321
  Serious: Yes (Hospitalization, Other)
  Sender: FDA-Public Use
  Company Number: ES-JNJFOC-20171031945

PATIENT
  Age: 67 Year
  Sex: Female

DRUGS (1)
  1. IBRUTINIB [Suspect]
     Active Substance: IBRUTINIB
     Indication: LYMPHOCYTIC LYMPHOMA
     Dosage: 7.5 MONTHS DURATION
     Route: 048

REACTIONS (4)
  - Meningitis cryptococcal [Unknown]
  - Extradural haematoma [Unknown]
  - Diarrhoea [Unknown]
  - Atrial fibrillation [Unknown]
